FAERS Safety Report 21537218 (Version 2)
Quarter: 2022Q4

REPORT INFORMATION
  Report Type: Spontaneous
  Country: PT (occurrence: PT)
  Receive Date: 20221101
  Receipt Date: 20221216
  Transmission Date: 20230112
  Serious: Yes (Death, Hospitalization)
  Sender: FDA-Public Use
  Company Number: PT-TOWA-202203692

PATIENT
  Age: 76 Year
  Sex: Female

DRUGS (1)
  1. METFORMIN [Suspect]
     Active Substance: METFORMIN HYDROCHLORIDE
     Indication: Type 2 diabetes mellitus
     Route: 065

REACTIONS (4)
  - Lactic acidosis [Fatal]
  - Renal disorder [Fatal]
  - Cardiac arrest [Unknown]
  - Bradycardia [Unknown]
